FAERS Safety Report 12425774 (Version 1)
Quarter: 2016Q2

REPORT INFORMATION
  Report Type: Spontaneous
  Country: GB (occurrence: GB)
  Receive Date: 20160601
  Receipt Date: 20160601
  Transmission Date: 20160815
  Serious: Yes (Other)
  Sender: FDA-Public Use
  Company Number: GB-WATSON-2016-10892

PATIENT
  Age: 34 Year
  Sex: Female
  Weight: 105 kg

DRUGS (2)
  1. NAPROXEN (UNKNOWN) [Suspect]
     Active Substance: NAPROXEN
     Indication: PRODUCT USED FOR UNKNOWN INDICATION
     Dosage: 250 MG, DAILY
     Route: 065
     Dates: start: 2016
  2. ENBREL [Suspect]
     Active Substance: ETANERCEPT
     Indication: JUVENILE IDIOPATHIC ARTHRITIS
     Dosage: 50 MG, WEEKLY (PRE-FILLED PEN)
     Route: 058
     Dates: start: 20160421

REACTIONS (5)
  - Musculoskeletal pain [Unknown]
  - Rheumatoid arthritis [Unknown]
  - Back pain [Unknown]
  - Renal disorder [Unknown]
  - Headache [Unknown]

NARRATIVE: CASE EVENT DATE: 2016
